FAERS Safety Report 25879953 (Version 2)
Quarter: 2025Q4

REPORT INFORMATION
  Report Type: Spontaneous
  Country: RU (occurrence: RU)
  Receive Date: 20251004
  Receipt Date: 20251014
  Transmission Date: 20260117
  Serious: Yes (Other)
  Sender: GALDERMA
  Company Number: RU-GALDERMA-RU2025019059

PATIENT

DRUGS (1)
  1. ADAPALENE\BENZOYL PEROXIDE [Suspect]
     Active Substance: ADAPALENE\BENZOYL PEROXIDE
     Indication: Product used for unknown indication
     Dosage: 1 DOSAGE FORM, APPLIED ON FACE, ONCE A DAY BEFORE BEDTIME
     Route: 061

REACTIONS (4)
  - Angioedema [Recovered/Resolved]
  - Eye swelling [Recovered/Resolved]
  - Application site swelling [Recovered/Resolved]
  - Oropharyngeal pain [Recovered/Resolved]
